FAERS Safety Report 9926413 (Version 1)
Quarter: 2014Q1

REPORT INFORMATION
  Report Type: Spontaneous
  Country: US (occurrence: US)
  Receive Date: 20140226
  Receipt Date: 20140226
  Transmission Date: 20141002
  Serious: No
  Sender: FDA-Public Use
  Company Number: US-AMGEN-USASP2013067463

PATIENT
  Age: 63 Year
  Sex: Female

DRUGS (6)
  1. ENBREL [Suspect]
     Indication: PRODUCT USED FOR UNKNOWN INDICATION
     Dosage: 50 MG, ONCE A WEEK
     Route: 058
     Dates: end: 20130911
  2. PRISTIQ [Concomitant]
     Dosage: 50 MG, UNK
  3. RAMIPRIL [Concomitant]
     Dosage: 5 MG, UNK
  4. ZETIA [Concomitant]
     Dosage: 10 MG, UNK
  5. LEVOTHYROXIN [Concomitant]
     Dosage: 25 MUG, UNK
  6. METFORMIN [Concomitant]
     Dosage: 850 MG, UNK

REACTIONS (1)
  - Drug ineffective [Unknown]
